FAERS Safety Report 26134600 (Version 2)
Quarter: 2025Q4

REPORT INFORMATION
  Report Type: Spontaneous
  Country: EU (occurrence: EU)
  Receive Date: 20251209
  Receipt Date: 20251215
  Transmission Date: 20260118
  Serious: Yes (Disabling)
  Sender: UCB
  Company Number: None

PATIENT
  Age: 68 Year
  Weight: 63 kg

DRUGS (2)
  1. BRIVIACT [Suspect]
     Active Substance: BRIVARACETAM
     Indication: Product used for unknown indication
     Dosage: 2X PER DAY
     Route: 061
  2. KEPPRA [Suspect]
     Active Substance: LEVETIRACETAM
     Indication: Product used for unknown indication
     Dosage: UNK

REACTIONS (2)
  - Dizziness [Recovering/Resolving]
  - Depressed level of consciousness [Recovering/Resolving]
